FAERS Safety Report 16320196 (Version 2)
Quarter: 2019Q2

REPORT INFORMATION
  Report Type: Spontaneous
  Country: US (occurrence: US)
  Receive Date: 20190516
  Receipt Date: 20190522
  Transmission Date: 20190711
  Serious: Yes (Other)
  Sender: FDA-Public Use
  Company Number: US-PFIZER INC-2019203159

PATIENT
  Age: 1 Year
  Sex: Female
  Weight: 14.6 kg

DRUGS (2)
  1. INFANTS ADVIL CONCENTRATED DROPS [Suspect]
     Active Substance: IBUPROFEN
     Indication: PYREXIA
     Dosage: 5 ML, UNK
     Route: 048
     Dates: start: 20190507
  2. MMR [Suspect]
     Active Substance: MEASLES-MUMPS-RUBELLA VIRUS VACCINE
     Dosage: UNK

REACTIONS (10)
  - Amblyopia [Recovering/Resolving]
  - Febrile convulsion [Unknown]
  - Crying [Unknown]
  - Incorrect dose administered [Unknown]
  - Rash [Recovering/Resolving]
  - Diarrhoea [Recovered/Resolved]
  - Lip discolouration [Recovering/Resolving]
  - Hyperhidrosis [Unknown]
  - Lethargy [Recovering/Resolving]
  - Skin discolouration [Recovering/Resolving]

NARRATIVE: CASE EVENT DATE: 20190508
